FAERS Safety Report 7107673-3 (Version None)
Quarter: 2010Q4

REPORT INFORMATION
  Report Type: 
  Country: None (occurrence: None)
  Receive Date: 20101117
  Receipt Date: 20101108
  Transmission Date: 20110411
  Serious: Yes (Disabling, Congenital Anomaly)
  Sender: FDA-Public Use
  Company Number: DE-ASTRAZENECA-2010SE42517

PATIENT
  Sex: Male

DRUGS (2)
  1. PULMICORT [Suspect]
     Dosage: 1 PUFF, DAILY
     Route: 064
  2. AERODUR TH [Concomitant]
     Dosage: REALLY RARELY, ONLY IF REQUIRED FOR DISCOMFORT
     Route: 064

REACTIONS (1)
  - CLEFT PALATE [None]
